FAERS Safety Report 9882772 (Version 2)
Quarter: 2014Q1

REPORT INFORMATION
  Report Type: Spontaneous
  Country: DE (occurrence: DE)
  Receive Date: 20140207
  Receipt Date: 20140207
  Transmission Date: 20141002
  Serious: Yes (Hospitalization)
  Sender: FDA-Public Use
  Company Number: DE-BAYER-2013-156131

PATIENT
  Age: 47 Year
  Sex: Female
  Weight: 87 kg

DRUGS (10)
  1. BETAFERON [Suspect]
     Indication: MULTIPLE SCLEROSIS
     Dosage: 250 MCG/ML, QOD
     Dates: start: 20121208
  2. BETAFERON [Suspect]
     Indication: MULTIPLE SCLEROSIS
     Dosage: UNK
     Dates: end: 201307
  3. BETAFERON [Suspect]
     Indication: MULTIPLE SCLEROSIS
     Dosage: UNK
     Dates: start: 201311
  4. ATORVASTATIN [Concomitant]
     Dosage: 10 MG, QD
     Dates: start: 20131125
  5. EBASTINE [Concomitant]
     Dosage: 10 MG, QD
     Dates: start: 20131008
  6. L-THYROXIN [Concomitant]
     Dosage: 75 ?G, UNK
     Dates: start: 20110815
  7. VENLAFAXINE [Concomitant]
     Dosage: 18.75 MG, UNK
  8. MCP [Concomitant]
     Dosage: UNK
  9. ESOMEPRAZOLE [Concomitant]
     Dosage: 40 MG, QD
  10. VIANI [Concomitant]
     Dosage: 1 DF, QD

REACTIONS (11)
  - Phlebitis [None]
  - Rash [Recovering/Resolving]
  - Pruritus [Recovering/Resolving]
  - Pain of skin [Recovering/Resolving]
  - Skin mass [Recovering/Resolving]
  - Gait disturbance [Recovering/Resolving]
  - Sensory disturbance [Recovering/Resolving]
  - Lymph node pain [None]
  - Lymphadenopathy [None]
  - Multiple sclerosis [Recovering/Resolving]
  - Liver function test abnormal [None]
